FAERS Safety Report 25938837 (Version 3)
Quarter: 2025Q4

REPORT INFORMATION
  Report Type: Report from Study
  Country: GB (occurrence: GB)
  Receive Date: 20251019
  Receipt Date: 20251203
  Transmission Date: 20260118
  Serious: Yes (Hospitalization)
  Sender: ABBVIE
  Company Number: GB-ABBVIE-6504723

PATIENT
  Age: 74 Year
  Sex: Female

DRUGS (4)
  1. CARBIDOPA\LEVODOPA [Suspect]
     Active Substance: CARBIDOPA\LEVODOPA
     Indication: Parkinson^s disease
     Dosage: MD 8.8, CR 4.6, ED 2.8
     Route: 050
     Dates: start: 2020, end: 2025
  2. CARBIDOPA\LEVODOPA [Suspect]
     Active Substance: CARBIDOPA\LEVODOPA
     Dosage: MD 8.8, CR 4.4, ED 2.8
     Route: 050
     Dates: start: 2025
  3. CARBIDOPA\LEVODOPA [Concomitant]
     Active Substance: CARBIDOPA\LEVODOPA
     Indication: Parkinson^s disease
     Route: 048
  4. TRIMETHOPRIM [Concomitant]
     Active Substance: TRIMETHOPRIM
     Indication: Product used for unknown indication

REACTIONS (11)
  - Spinal disorder [Unknown]
  - Device dislocation [Unknown]
  - Device use error [Unknown]
  - Overdose [Recovering/Resolving]
  - Device issue [Not Recovered/Not Resolved]
  - Dyskinesia [Unknown]
  - On and off phenomenon [Unknown]
  - Back disorder [Unknown]
  - Abnormal behaviour [Unknown]
  - Dementia [Unknown]
  - Confusional state [Unknown]

NARRATIVE: CASE EVENT DATE: 20250101
